FAERS Safety Report 5960084-6 (Version None)
Quarter: 2008Q4

REPORT INFORMATION
  Report Type: 
  Country: None (occurrence: None)
  Receive Date: 20081119
  Receipt Date: 20081119
  Transmission Date: 20090506
  Serious: Yes (Life-Threatening)
  Sender: FDA-Public Use
  Company Number: None

PATIENT
  Age: 72 Year
  Sex: Female

DRUGS (9)
  1. HYDROMORPHONE HCL [Suspect]
     Indication: PAIN
     Dosage: 2.4 MG IV OVER 30 HRS
     Route: 042
     Dates: start: 20081008, end: 20081009
  2. GABAPENTIN [Concomitant]
  3. HYDRALAZINE HCL [Concomitant]
  4. INSULIN [Concomitant]
  5. LEVETIRACETAM [Concomitant]
  6. METOPROLOL TARTRATE [Concomitant]
  7. RANITIDINE [Concomitant]
  8. SENNA [Concomitant]
  9. SIMVASTATIN [Concomitant]

REACTIONS (3)
  - OXYGEN SATURATION DECREASED [None]
  - SEDATION [None]
  - UNRESPONSIVE TO STIMULI [None]
